FAERS Safety Report 17082436 (Version 16)
Quarter: 2021Q1

REPORT INFORMATION
  Report Type: Report from Study
  Country: US (occurrence: US)
  Receive Date: 20191127
  Receipt Date: 20210105
  Transmission Date: 20210419
  Serious: Yes (Other)
  Sender: FDA-Public Use
  Company Number: US-B.I. PHARMACEUTICALS,INC./RIDGEFIELD-2019-BI-035027

PATIENT
  Age: 85 Year
  Sex: Female

DRUGS (5)
  1. LINZESS [Suspect]
     Active Substance: LINACLOTIDE
     Indication: PRODUCT USED FOR UNKNOWN INDICATION
     Route: 065
  2. OFEV [Suspect]
     Active Substance: NINTEDANIB
     Indication: IDIOPATHIC PULMONARY FIBROSIS
     Route: 048
     Dates: start: 20190815
  3. LASIX [Concomitant]
     Active Substance: FUROSEMIDE
     Indication: PRODUCT USED FOR UNKNOWN INDICATION
  4. OFEV [Suspect]
     Active Substance: NINTEDANIB
  5. OFEV [Suspect]
     Active Substance: NINTEDANIB

REACTIONS (38)
  - Diplopia [Unknown]
  - Diarrhoea [Not Recovered/Not Resolved]
  - Body temperature fluctuation [Not Recovered/Not Resolved]
  - Surgery [Unknown]
  - Haemorrhoids [Unknown]
  - Weight decreased [Unknown]
  - Blood pressure increased [Unknown]
  - Faeces soft [Recovering/Resolving]
  - Malaise [Unknown]
  - Dyspnoea exertional [Unknown]
  - Restless legs syndrome [Unknown]
  - Diarrhoea [Recovered/Resolved]
  - Haematochezia [Unknown]
  - Large intestine polyp [Unknown]
  - Diarrhoea [Recovering/Resolving]
  - Eructation [Not Recovered/Not Resolved]
  - Rectal haemorrhage [Not Recovered/Not Resolved]
  - Malaise [Recovering/Resolving]
  - Cough [Unknown]
  - Abdominal pain upper [Unknown]
  - Movement disorder [Unknown]
  - Night sweats [Unknown]
  - Dizziness [Unknown]
  - Fatigue [Not Recovered/Not Resolved]
  - Gastrooesophageal reflux disease [Recovered/Resolved]
  - International normalised ratio decreased [Unknown]
  - Haemorrhoidal haemorrhage [Unknown]
  - Urinary control neurostimulator implantation [Unknown]
  - Nausea [Unknown]
  - Dyspepsia [Not Recovered/Not Resolved]
  - Blood glucose increased [Unknown]
  - Asthenia [Unknown]
  - Abnormal loss of weight [Not Recovered/Not Resolved]
  - Urinary tract infection [Unknown]
  - Visual impairment [Unknown]
  - Oxygen saturation decreased [Unknown]
  - Glucose tolerance impaired [Unknown]
  - Tooth infection [Unknown]

NARRATIVE: CASE EVENT DATE: 2020
